FAERS Safety Report 9167259 (Version 2)
Quarter: 2013Q2

REPORT INFORMATION
  Report Type: Spontaneous
  Country: FR (occurrence: FR)
  Receive Date: 20130318
  Receipt Date: 20130606
  Transmission Date: 20140414
  Serious: Yes (Other)
  Sender: FDA-Public Use
  Company Number: FR-009507513-1303FRA003858

PATIENT
  Age: 16 Year
  Sex: Male

DRUGS (13)
  1. CANCIDAS [Suspect]
     Indication: PROPHYLAXIS
     Dosage: 50 MG, QD
     Route: 048
     Dates: start: 20120929, end: 20121016
  2. XARELTO [Suspect]
     Dosage: 15 MG, BID
     Route: 048
     Dates: start: 20120927, end: 20121016
  3. CIFLOX (CIPROFLOXACIN HYDROCHLORIDE) [Suspect]
     Dosage: 400 MG, BID
     Route: 042
     Dates: start: 20121008, end: 20121017
  4. HYDROCORTISONE [Concomitant]
     Dosage: 50 MG, QD
     Route: 048
     Dates: start: 20121005, end: 20121017
  5. EUPANTOL [Concomitant]
     Dosage: UNK
     Route: 042
     Dates: start: 20121010, end: 20121228
  6. KETOPROFEN [Concomitant]
     Dosage: UNK
  7. VANCOMYCIN [Concomitant]
     Dosage: UNK
     Route: 042
  8. POLARAMINE (DEXCHLORPHENIRAMINE MALEATE) [Concomitant]
     Dosage: UNK
  9. RIVOTRIL [Concomitant]
     Dosage: UNK
  10. SPASFON [Concomitant]
     Dosage: UNK
  11. TOPALGIC (TRAMADOL HYDROCHLORIDE) [Concomitant]
     Dosage: UNK
  12. TERCIAN [Concomitant]
     Dosage: UNK
  13. ACETAMINOPHEN [Concomitant]

REACTIONS (1)
  - Cutaneous vasculitis [Recovering/Resolving]
